FAERS Safety Report 12318531 (Version 1)
Quarter: 2016Q2

REPORT INFORMATION
  Report Type: Spontaneous
  Country: GB (occurrence: GB)
  Receive Date: 20160429
  Receipt Date: 20160429
  Transmission Date: 20160815
  Serious: Yes (Other)
  Sender: FDA-Public Use
  Company Number: GB-BAUSCH-BL-2016-009626

PATIENT
  Age: 64 Year
  Sex: Female
  Weight: 51.7 kg

DRUGS (1)
  1. MINIMS PROXYMETACAINE HYDROCHLORIDE 0.5 % W/V EYE DROPS, SOLUTION [Suspect]
     Active Substance: PROPARACAINE HYDROCHLORIDE
     Indication: PRODUCT USED FOR UNKNOWN INDICATION
     Route: 065
     Dates: start: 20140209

REACTIONS (12)
  - Hypersensitivity [Not Recovered/Not Resolved]
  - Skin discolouration [Unknown]
  - Nausea [Recovered/Resolved]
  - Head discomfort [Unknown]
  - Rash [Unknown]
  - Ear pain [Unknown]
  - Dysgeusia [Unknown]
  - Paraesthesia oral [Unknown]
  - Mydriasis [Recovered/Resolved]
  - Feeling cold [Unknown]
  - Chest discomfort [Recovered/Resolved]
  - Pharyngeal oedema [Unknown]

NARRATIVE: CASE EVENT DATE: 20140209
